FAERS Safety Report 16992649 (Version 3)
Quarter: 2020Q1

REPORT INFORMATION
  Report Type: Report from Study
  Country: MX (occurrence: MX)
  Receive Date: 20191105
  Receipt Date: 20200202
  Transmission Date: 20200409
  Serious: Yes (Death, Hospitalization, Other)
  Sender: FDA-Public Use
  Company Number: MX-BRISTOL-MYERS SQUIBB COMPANY-BMS-2019-105867

PATIENT
  Age: 48 Year
  Sex: Male

DRUGS (1)
  1. DASATINIB. [Suspect]
     Active Substance: DASATINIB
     Indication: CHRONIC MYELOID LEUKAEMIA
     Dosage: 100 MILLIGRAM, DAILY
     Route: 048
     Dates: start: 20171222

REACTIONS (6)
  - Hypovolaemic shock [Recovering/Resolving]
  - Dehydration [Recovering/Resolving]
  - Gastric infection [Recovering/Resolving]
  - Diarrhoea [Recovering/Resolving]
  - Pneumonia [Recovering/Resolving]
  - Respiratory failure [Fatal]

NARRATIVE: CASE EVENT DATE: 20191007
